FAERS Safety Report 17167079 (Version 6)
Quarter: 2020Q4

REPORT INFORMATION
  Report Type: Report from Study
  Country: US (occurrence: US)
  Receive Date: 20191217
  Receipt Date: 20201229
  Transmission Date: 20210113
  Serious: No
  Sender: FDA-Public Use
  Company Number: NVSC2019US009509

PATIENT
  Sex: Female

DRUGS (2)
  1. COSENTYX [Suspect]
     Active Substance: SECUKINUMAB
     Dosage: 300 MG, QMO
     Route: 058
     Dates: start: 201909
  2. COSENTYX [Suspect]
     Active Substance: SECUKINUMAB
     Indication: PSORIASIS
     Dosage: 300 MG, QMO
     Route: 058

REACTIONS (8)
  - Swelling [Not Recovered/Not Resolved]
  - Skin plaque [Recovering/Resolving]
  - Back pain [Unknown]
  - Skin lesion [Not Recovered/Not Resolved]
  - Claustrophobia [Unknown]
  - Pruritus [Recovering/Resolving]
  - Skin discolouration [Recovering/Resolving]
  - Psoriasis [Recovering/Resolving]
